FAERS Safety Report 11415346 (Version 2)
Quarter: 2015Q3

REPORT INFORMATION
  Report Type: Spontaneous
  Country: PL (occurrence: PL)
  Receive Date: 20150825
  Receipt Date: 20150825
  Transmission Date: 20151125
  Serious: Yes (Hospitalization)
  Sender: FDA-Public Use
  Company Number: PL-WATSON-2015-17848

PATIENT
  Age: 70 Year
  Sex: Female

DRUGS (2)
  1. CHLOROQUINE [Suspect]
     Active Substance: CHLOROQUINE\CHLOROQUINE PHOSPHATE
     Indication: ORAL LICHEN PLANUS
     Dosage: 250 MG, UNK
     Route: 048
  2. HYDROCORTISONE (UNKNOWN) [Suspect]
     Active Substance: HYDROCORTISONE
     Indication: ORAL LICHEN PLANUS
     Dosage: UNK
     Route: 061

REACTIONS (2)
  - Drug ineffective [Recovering/Resolving]
  - Gastrointestinal disorder [Unknown]
